FAERS Safety Report 6578870-0 (Version None)
Quarter: 2010Q1

REPORT INFORMATION
  Report Type: 
  Country: None (occurrence: None)
  Receive Date: 20100211
  Receipt Date: 20100204
  Transmission Date: 20100710
  Serious: Yes (Other)
  Sender: FDA-Public Use
  Company Number: UG-B.I. PHARMACEUTICALS,INC./RIDGEFIELD-2009-BP-14621BP

PATIENT
  Age: 33 Year
  Sex: Female

DRUGS (3)
  1. VIRAMUNE [Suspect]
     Indication: ANTIVIRAL TREATMENT
     Dosage: 400 MG
     Route: 048
     Dates: start: 20071101
  2. EPIVIR [Suspect]
     Indication: ANTIVIRAL TREATMENT
     Dosage: 300 MG
     Route: 048
     Dates: start: 20071101
  3. VIREAD [Suspect]
     Indication: ANTIVIRAL TREATMENT
     Dosage: 300 MG
     Route: 048
     Dates: start: 20070226

REACTIONS (1)
  - STILLBIRTH [None]
